FAERS Safety Report 8513942-2 (Version None)
Quarter: 2012Q3

REPORT INFORMATION
  Report Type: 
  Country: None (occurrence: None)
  Receive Date: 20120717
  Receipt Date: 20120702
  Transmission Date: 20120928
  Serious: Yes (Other)
  Sender: FDA-Public Use
  Company Number: JP-MSD-1207JPN000542

PATIENT

DRUGS (13)
  1. VANIPREVIR [Suspect]
     Dosage: UNK
     Route: 048
     Dates: start: 20120601, end: 20120630
  2. REBETOL [Suspect]
     Dosage: UNK, QD
     Route: 048
     Dates: start: 20120430, end: 20120517
  3. VANIPREVIR [Suspect]
     Dosage: UNK
     Route: 048
     Dates: start: 20120419, end: 20120428
  4. VANIPREVIR [Suspect]
     Dosage: UNK
     Dates: start: 20120430, end: 20120517
  5. PEGINTERFERON ALFA-2B [Suspect]
     Dosage: UNK, QW
     Route: 058
     Dates: start: 20120325, end: 20120628
  6. VANIPREVIR [Suspect]
     Dosage: UNK
     Route: 048
     Dates: start: 20120305, end: 20120412
  7. PEGINTERFERON ALFA-2B [Suspect]
     Dosage: UNK UNK, QW
     Route: 058
     Dates: start: 20120120, end: 20120511
  8. REBETOL [Suspect]
     Dosage: UNK, QD
     Route: 048
     Dates: start: 20120305, end: 20120412
  9. REBETOL [Suspect]
     Dosage: UNK, QD
     Route: 048
     Dates: start: 20120419, end: 20120428
  10. VANIPREVIR [Suspect]
     Indication: HEPATITIS C
     Dosage: 300 MG, BID
     Route: 048
     Dates: start: 20120120, end: 20120303
  11. REBETOL [Suspect]
     Indication: HEPATITIS C
     Dosage: UNK, QD
     Route: 048
     Dates: start: 20120120, end: 20120303
  12. REBETOL [Suspect]
     Dosage: UNK, QD
     Route: 048
     Dates: start: 20120531, end: 20120630
  13. CEFMETAZON [Concomitant]
     Dosage: UNK
     Dates: start: 20120112

REACTIONS (2)
  - ATRIAL FIBRILLATION [None]
  - DEHYDRATION [None]
